FAERS Safety Report 12890151 (Version 2)
Quarter: 2017Q3

REPORT INFORMATION
  Report Type: Report from Study
  Country: None (occurrence: BR)
  Receive Date: 20161027
  Receipt Date: 20170718
  Transmission Date: 20171127
  Serious: Yes (Other)
  Sender: FDA-Public Use
  Company Number: BR-ABBVIE-16P-020-1764917-00

PATIENT
  Age: 82 Year
  Sex: Female
  Weight: 80 kg

DRUGS (3)
  1. PIOTAZ [Concomitant]
     Indication: DIABETES MELLITUS
     Dates: start: 2016
  2. LIPIDIL [Suspect]
     Active Substance: FENOFIBRATE
     Indication: BLOOD TRIGLYCERIDES ABNORMAL
     Dosage: DAILY DOSE: 1 TABLET AFTER LUNCH
     Route: 048
     Dates: start: 201607, end: 2017
  3. ENALAPRIL [Concomitant]
     Active Substance: ENALAPRIL
     Indication: HYPERTENSION
     Dosage: DAILY DOSE: 20 MG IN THE MORNING

REACTIONS (10)
  - Tongue disorder [Recovered/Resolved]
  - Headache [Recovered/Resolved]
  - Fall [Recovered/Resolved]
  - Musculoskeletal disorder [Recovered/Resolved]
  - Loss of consciousness [Recovered/Resolved]
  - Hyperhidrosis [Recovered/Resolved]
  - Malaise [Recovered/Resolved]
  - Vomiting [Recovered/Resolved]
  - Hypoglycaemia [Recovered/Resolved]
  - Dizziness [Recovered/Resolved]

NARRATIVE: CASE EVENT DATE: 201610
